FAERS Safety Report 25671951 (Version 2)
Quarter: 2025Q3

REPORT INFORMATION
  Report Type: Report from Study
  Country: US (occurrence: US)
  Receive Date: 20250812
  Receipt Date: 20250919
  Transmission Date: 20251020
  Serious: No
  Sender: MALLINCKRODT
  Company Number: US-MALLINCKRODT-MNK202504934

PATIENT
  Age: 72 Year
  Sex: Male
  Weight: 201 kg

DRUGS (1)
  1. CORTICOTROPIN [Suspect]
     Active Substance: CORTICOTROPIN
     Indication: Proteinuria
     Dosage: 40 UNITS
     Route: 058
     Dates: start: 20250624

REACTIONS (9)
  - Limb discomfort [Unknown]
  - Chest discomfort [Unknown]
  - Musculoskeletal discomfort [Unknown]
  - Back disorder [Unknown]
  - Discomfort [Unknown]
  - Joint swelling [Unknown]
  - Injection site swelling [Unknown]
  - Injection site haemorrhage [Unknown]
  - Drug interaction [Unknown]

NARRATIVE: CASE EVENT DATE: 20250101
